FAERS Safety Report 7595797-6 (Version None)
Quarter: 2011Q3

REPORT INFORMATION
  Report Type: 
  Country: None (occurrence: None)
  Receive Date: 20110707
  Receipt Date: 20110628
  Transmission Date: 20111222
  Serious: Yes (Death)
  Sender: FDA-Public Use
  Company Number: US-ABBOTT-11P-163-0728585-00

PATIENT
  Age: 56 Year
  Sex: Female
  Weight: 56.977 kg

DRUGS (4)
  1. VICODIN [Suspect]
     Indication: NEURALGIA
     Dosage: 5/500; 1 TABLET 3X PER DAY AS NEEDED
     Route: 048
     Dates: start: 20070802, end: 20101012
  2. OXYCONTIN [Suspect]
     Indication: PAIN
     Dosage: 11 PILLS DAILY
     Dates: start: 20100921, end: 20101012
  3. VICODIN [Suspect]
     Indication: ANGIOPATHY
  4. METHADONE HCL [Suspect]
     Indication: PAIN
     Route: 048
     Dates: start: 20100921, end: 20101012

REACTIONS (3)
  - INTENTIONAL OVERDOSE [None]
  - RESPIRATORY DEPRESSION [None]
  - COMPLETED SUICIDE [None]
